FAERS Safety Report 7117237-3 (Version None)
Quarter: 2010Q4

REPORT INFORMATION
  Report Type: 
  Country: None (occurrence: None)
  Receive Date: 20101122
  Receipt Date: 20101116
  Transmission Date: 20110411
  Serious: Yes (Hospitalization)
  Sender: FDA-Public Use
  Company Number: FR-PFIZER INC-2010148899

PATIENT
  Age: 54 Year
  Sex: Female

DRUGS (8)
  1. SOLU-MEDROL [Suspect]
     Indication: FOLLICLE CENTRE LYMPHOMA, FOLLICULAR GRADE I, II, III STAGE III
     Dosage: 70 MG, EVERY 3 WEEKS
     Route: 042
     Dates: start: 20060202, end: 20060518
  2. SOLU-MEDROL [Suspect]
     Dosage: 60 MG, EVERY 3 WEEKS
     Dates: start: 20060608, end: 20060629
  3. RITUXIMAB [Suspect]
     Indication: FOLLICLE CENTRE LYMPHOMA, FOLLICULAR GRADE I, II, III STAGE III
     Dosage: 640 MG, EVERY 3 WEEKS
     Route: 042
     Dates: start: 20060202, end: 20060628
  4. RITUXIMAB [Suspect]
     Dosage: 630MG, ONCE EVERY 8 WEEKS
     Dates: start: 20060101, end: 20080513
  5. ADRIAMYCIN PFS [Suspect]
     Indication: FOLLICLE CENTRE LYMPHOMA, FOLLICULAR GRADE I, II, III STAGE III
     Dosage: 85 MG, EVERY 3 WEEKS
     Route: 042
     Dates: start: 20060202, end: 20060518
  6. ENDOXAN [Suspect]
     Indication: FOLLICLE CENTRE LYMPHOMA, FOLLICULAR GRADE I, II, III STAGE III
     Dosage: 1280 MG, EVERY 3 WEEKS
     Route: 042
     Dates: start: 20060202, end: 20060518
  7. ONCOVIN [Suspect]
     Indication: FOLLICLE CENTRE LYMPHOMA, FOLLICULAR GRADE I, II, III STAGE III
     Dosage: 2 MG, EVERY 3 WEEKS
     Route: 042
     Dates: start: 20060202, end: 20060518
  8. CORTANCYL [Suspect]
     Indication: FOLLICLE CENTRE LYMPHOMA, FOLLICULAR GRADE I, II, III STAGE III
     Dosage: 70 MG PER COURSE FROM DAY 2-5
     Route: 042
     Dates: start: 20060202, end: 20060518

REACTIONS (3)
  - HYPOGAMMAGLOBULINAEMIA [None]
  - INFECTION SUSCEPTIBILITY INCREASED [None]
  - TONSILLITIS [None]
